FAERS Safety Report 5923021-6 (Version None)
Quarter: 2008Q4

REPORT INFORMATION
  Report Type: 
  Country: None (occurrence: None)
  Receive Date: 20081018
  Receipt Date: 20081007
  Transmission Date: 20090506
  Serious: Yes (Other)
  Sender: FDA-Public Use
  Company Number: US-PFIZER INC-2008070611

PATIENT
  Sex: Female
  Weight: 52.727 kg

DRUGS (6)
  1. DILANTIN [Suspect]
     Indication: CONVULSION
     Dates: start: 19590101
  2. KEPPRA [Suspect]
     Indication: CONVULSION
     Dates: start: 20080702
  3. LISINOPRIL [Concomitant]
  4. FOLIC ACID [Concomitant]
  5. VITAMIN B-12 [Concomitant]
  6. ARGININE [Concomitant]

REACTIONS (7)
  - ANTICONVULSANT DRUG LEVEL INCREASED [None]
  - CONVULSION [None]
  - DEPRESSION [None]
  - FATIGUE [None]
  - NAUSEA [None]
  - SUICIDAL IDEATION [None]
  - VERTIGO [None]
